FAERS Safety Report 19581968 (Version 1)
Quarter: 2021Q3

REPORT INFORMATION
  Report Type: Spontaneous
  Country: US (occurrence: US)
  Receive Date: 20210717
  Receipt Date: 20210717
  Transmission Date: 20211014
  Serious: Yes (Hospitalization)
  Sender: FDA-Public Use
  Company Number: None

PATIENT
  Age: 74 Year
  Sex: Male
  Weight: 86.8 kg

DRUGS (1)
  1. CYTARABINE. [Suspect]
     Active Substance: CYTARABINE
     Dates: end: 20210430

REACTIONS (4)
  - Febrile neutropenia [None]
  - Diarrhoea [None]
  - Escherichia test positive [None]
  - Clostridium test positive [None]

NARRATIVE: CASE EVENT DATE: 20210307
